FAERS Safety Report 16428161 (Version 1)
Quarter: 2019Q2

REPORT INFORMATION
  Report Type: Report from Study
  Country: MX (occurrence: MX)
  Receive Date: 20190613
  Receipt Date: 20190613
  Transmission Date: 20190711
  Serious: Yes (Other)
  Sender: FDA-Public Use
  Company Number: MX-UCBSA-2019010502

PATIENT
  Sex: Female
  Weight: 45 kg

DRUGS (5)
  1. ROTIGOTINE [Suspect]
     Active Substance: ROTIGOTINE
     Indication: PARKINSON^S DISEASE
     Dosage: 2 MG, ONCE DAILY (QD)
     Route: 062
     Dates: start: 201902, end: 2019
  2. CYMBALTA [Concomitant]
     Active Substance: DULOXETINE HYDROCHLORIDE
     Indication: ANXIETY
     Dosage: 1 TABLET AT NIGHT
     Route: 048
     Dates: start: 2014
  3. 5 HTP [OXITRIPTAN] [Concomitant]
     Active Substance: OXITRIPTAN
     Indication: STRESS
     Dosage: 1 TABLET MORNING AND 1 AT NOON AND 1 AT NIGHT
     Route: 048
     Dates: start: 2017
  4. ROTIGOTINE [Suspect]
     Active Substance: ROTIGOTINE
     Dosage: 4 MILLIGRAM, ONCE DAILY (QD)
     Route: 062
     Dates: start: 2019, end: 2019
  5. KINEX [Concomitant]
     Active Substance: EPALRESTAT
     Indication: TREMOR
     Dosage: 1 TABLET IN MRNING AND 1 IN AFTERNOON
     Route: 048
     Dates: start: 2017

REACTIONS (6)
  - Pain in extremity [Not Recovered/Not Resolved]
  - Migraine [Recovered/Resolved]
  - Somnolence [Not Recovered/Not Resolved]
  - Parkinson^s disease [Recovered/Resolved]
  - Feeling abnormal [Not Recovered/Not Resolved]
  - Stress [Not Recovered/Not Resolved]

NARRATIVE: CASE EVENT DATE: 2019
